FAERS Safety Report 8518487-1 (Version None)
Quarter: 2012Q3

REPORT INFORMATION
  Report Type: 
  Country: None (occurrence: None)
  Receive Date: 20120718
  Receipt Date: 20120412
  Transmission Date: 20120928
  Serious: No
  Sender: FDA-Public Use
  Company Number: US-BRISTOL-MYERS SQUIBB COMPANY-16517286

PATIENT
  Age: 64 Year
  Sex: Female
  Weight: 100 kg

DRUGS (4)
  1. WARFARIN SODIUM [Suspect]
  2. METOPROLOL SUCCINATE [Concomitant]
     Indication: HYPERTENSION
  3. XARELTO [Concomitant]
     Indication: COAGULOPATHY
  4. COUMADIN [Suspect]
     Dates: start: 20120101

REACTIONS (1)
  - INTERNATIONAL NORMALISED RATIO ABNORMAL [None]
